FAERS Safety Report 11919753 (Version 1)
Quarter: 2016Q1

REPORT INFORMATION
  Report Type: Spontaneous
  Country: US (occurrence: US)
  Receive Date: 20160115
  Receipt Date: 20160115
  Transmission Date: 20160526
  Serious: No
  Sender: FDA-Public Use
  Company Number: US-BAYER-2016-008462

PATIENT
  Age: 74 Year
  Sex: Male
  Weight: 131.52 kg

DRUGS (7)
  1. FISH OIL [Concomitant]
     Active Substance: FISH OIL
  2. ALEVE [Suspect]
     Active Substance: NAPROXEN SODIUM
     Indication: PAIN
     Dosage: 2 DF, BID
     Route: 048
     Dates: start: 2011
  3. BAYER LOW DOSE [Suspect]
     Active Substance: ASPIRIN
     Dosage: 1 DF, QD
     Route: 048
     Dates: start: 2011
  4. ZINC [Concomitant]
     Active Substance: ZINC\ZINC CHLORIDE
  5. FLUORIDE [Concomitant]
     Active Substance: SODIUM FLUORIDE
  6. LASIKAL [Concomitant]
  7. SAW PALMETTO [Concomitant]
     Active Substance: SAW PALMETTO

REACTIONS (2)
  - Product use issue [None]
  - Expired product administered [None]

NARRATIVE: CASE EVENT DATE: 2011
